FAERS Safety Report 6399520-2 (Version None)
Quarter: 2009Q4

REPORT INFORMATION
  Report Type: 
  Country: None (occurrence: None)
  Receive Date: 20091014
  Receipt Date: 20091002
  Transmission Date: 20100525
  Serious: Yes (Other)
  Sender: FDA-Public Use
  Company Number: US-JNJFOC-20091001160

PATIENT
  Sex: Male

DRUGS (1)
  1. INVEGA [Suspect]
     Indication: DRUG USE FOR UNKNOWN INDICATION
     Route: 048

REACTIONS (4)
  - JOINT STIFFNESS [None]
  - SPEECH DISORDER [None]
  - TACHYCARDIA [None]
  - TONGUE DISORDER [None]
